FAERS Safety Report 13637065 (Version 2)
Quarter: 2017Q2

REPORT INFORMATION
  Report Type: Spontaneous
  Country: MX (occurrence: MX)
  Receive Date: 20170609
  Receipt Date: 20170612
  Transmission Date: 20170830
  Serious: No
  Sender: FDA-Public Use
  Company Number: MX-009507513-1706MEX001665

PATIENT
  Sex: Female

DRUGS (1)
  1. IMPLANON [Suspect]
     Active Substance: ETONOGESTREL
     Dosage: 1 IMPLANT, UNK
     Route: 059

REACTIONS (3)
  - Product use issue [Unknown]
  - Complication of device insertion [Recovered/Resolved]
  - Vessel puncture site haemorrhage [Recovered/Resolved]
